FAERS Safety Report 8182644-7 (Version None)
Quarter: 2012Q1

REPORT INFORMATION
  Report Type: 
  Country: None (occurrence: None)
  Receive Date: 20120305
  Receipt Date: 20120229
  Transmission Date: 20120608
  Serious: No
  Sender: FDA-Public Use
  Company Number: US-PFIZER INC-2012054580

PATIENT
  Sex: Female

DRUGS (1)
  1. AROMASIN [Suspect]
     Dosage: UNK

REACTIONS (7)
  - PAIN [None]
  - DEPRESSION [None]
  - FATIGUE [None]
  - ARTHRALGIA [None]
  - ALOPECIA [None]
  - ANXIETY [None]
  - WEIGHT INCREASED [None]
